FAERS Safety Report 22976019 (Version 2)
Quarter: 2023Q4

REPORT INFORMATION
  Report Type: Spontaneous
  Country: US (occurrence: US)
  Receive Date: 20230925
  Receipt Date: 20231114
  Transmission Date: 20240110
  Serious: Yes (Hospitalization)
  Sender: FDA-Public Use
  Company Number: US-SAREPTA THERAPEUTICS INC.-SRP2023-003791

PATIENT
  Age: 16 Year
  Sex: Male
  Weight: 67.574 kg

DRUGS (9)
  1. EXONDYS 51 [Suspect]
     Active Substance: ETEPLIRSEN
     Indication: Duchenne muscular dystrophy
     Dosage: 2000 MILLIGRAM
     Route: 042
     Dates: start: 2017
  2. CHOLECALCIFEROL [Concomitant]
     Active Substance: CHOLECALCIFEROL
     Indication: Supplementation therapy
     Dosage: 5000 UNIT
     Route: 048
     Dates: start: 2017
  3. CALCIUM [Concomitant]
     Active Substance: CALCIUM
     Indication: Supplementation therapy
     Dosage: 25 MILLIGRAM
     Route: 048
     Dates: start: 2017
  4. EMFLAZA [Concomitant]
     Active Substance: DEFLAZACORT
     Indication: Duchenne muscular dystrophy
     Dosage: 18 MILLIGRAM
     Route: 048
     Dates: start: 2017
  5. EMFLAZA [Concomitant]
     Active Substance: DEFLAZACORT
     Dosage: 6 MILLIGRAM
     Route: 048
  6. ZOLOFT [Concomitant]
     Active Substance: SERTRALINE HYDROCHLORIDE
     Indication: Anxiety
     Dosage: 100 MILLIGRAM/125 MG
     Route: 048
  7. TYLENOL FOR CHILDREN [Concomitant]
     Indication: Pain
     Dosage: 160 MILLIGRAM/5 ML
     Route: 048
  8. TYLENOL FOR CHILDREN [Concomitant]
     Indication: Pyrexia
  9. CARVEDILOL [Concomitant]
     Active Substance: CARVEDILOL
     Indication: Cardiovascular event prophylaxis
     Dosage: TABLET 3.125MG3.125 MG ORAL 2 TIMES DAILY WITH MEALS
     Route: 048

REACTIONS (2)
  - Appendicitis perforated [Unknown]
  - Peritonitis [Unknown]

NARRATIVE: CASE EVENT DATE: 20230903
